FAERS Safety Report 8227742-4 (Version None)
Quarter: 2012Q1

REPORT INFORMATION
  Report Type: 
  Country: None (occurrence: None)
  Receive Date: 20120322
  Receipt Date: 20120314
  Transmission Date: 20120608
  Serious: No
  Sender: FDA-Public Use
  Company Number: US-BAYER-2012-025591

PATIENT

DRUGS (9)
  1. METFORMIN HCL [Concomitant]
     Dosage: 1000 MG, BID
  2. TRIAMTERENE AND HYDROCHLOROTHIAZIDE [Concomitant]
     Dosage: 1 DF, BID
  3. CLONIDINE [Concomitant]
     Dosage: .3 MG, TID
  4. TOPROL-XL [Concomitant]
     Dosage: 100 MG, QD
  5. NOVOLIN 70/30 [Concomitant]
     Dosage: 100 ML, BID
  6. ALEVE (CAPLET) [Suspect]
  7. GLUCOTROL XL [Concomitant]
     Dosage: 10 MG, BID
  8. BENAZEPRIL HYDROCHLORIDE [Concomitant]
     Dosage: 40 MG, QD
  9. TOPROL-XL [Concomitant]
     Dosage: 50 MG, QD

REACTIONS (2)
  - RASH [None]
  - DRUG HYPERSENSITIVITY [None]
